FAERS Safety Report 6144041-5 (Version None)
Quarter: 2009Q2

REPORT INFORMATION
  Report Type: 
  Country: None (occurrence: None)
  Receive Date: 20090406
  Receipt Date: 20090328
  Transmission Date: 20091009
  Serious: Yes (Hospitalization)
  Sender: FDA-Public Use
  Company Number: US-AMGEN-QUU340663

PATIENT
  Sex: Female

DRUGS (2)
  1. ENBREL [Suspect]
     Indication: RHEUMATOID ARTHRITIS
     Route: 058
     Dates: start: 20070201
  2. PLAQUENIL [Concomitant]
     Dates: start: 20061001

REACTIONS (3)
  - METRORRHAGIA [None]
  - MIGRAINE [None]
  - UTERINE MASS [None]
